FAERS Safety Report 6324041-2 (Version None)
Quarter: 2009Q3

REPORT INFORMATION
  Report Type: 
  Country: None (occurrence: None)
  Receive Date: 20090824
  Receipt Date: 20090601
  Transmission Date: 20100115
  Serious: No
  Sender: FDA-Public Use
  Company Number: US-ABBOTT-09P-163-0576988-00

PATIENT
  Sex: Female

DRUGS (16)
  1. NIASPAN [Suspect]
     Indication: LOW DENSITY LIPOPROTEIN INCREASED
     Dosage: EVERY NIGHT
     Dates: start: 20090525, end: 20090531
  2. NIASPAN [Suspect]
     Indication: BLOOD TRIGLYCERIDES INCREASED
  3. LOTREL [Concomitant]
     Indication: DRUG USE FOR UNKNOWN INDICATION
  4. BYSTOLIC [Concomitant]
     Indication: DRUG USE FOR UNKNOWN INDICATION
  5. LEXAPRO [Concomitant]
     Indication: DRUG USE FOR UNKNOWN INDICATION
  6. PROTONIX [Concomitant]
     Indication: DRUG USE FOR UNKNOWN INDICATION
  7. MIRAPEX [Concomitant]
     Indication: DRUG USE FOR UNKNOWN INDICATION
  8. VIT D [Concomitant]
     Indication: DRUG USE FOR UNKNOWN INDICATION
  9. OCCUVITE [Concomitant]
     Indication: DRUG USE FOR UNKNOWN INDICATION
  10. SUPPLEMENTS GIVEN BY HER CHIROPRACTOR [Concomitant]
     Indication: SUPPLEMENTATION THERAPY
  11. MULTI-ENZYME [Concomitant]
     Indication: DYSPEPSIA
  12. ORGANIC SALT [Concomitant]
     Indication: DRUG USE FOR UNKNOWN INDICATION
  13. K2 [Concomitant]
     Indication: DRUG USE FOR UNKNOWN INDICATION
  14. PYRIDOXINE HCL [Concomitant]
     Indication: DRUG USE FOR UNKNOWN INDICATION
  15. SOMETHING CONTAINING VITAMIN K, POTASSIUM, BRUSSEL SPROUTS [Concomitant]
     Indication: DRUG USE FOR UNKNOWN INDICATION
  16. MINTRAN WITH MAGNESIUM, IODINE, CALCIUM [Concomitant]
     Indication: DRUG USE FOR UNKNOWN INDICATION

REACTIONS (7)
  - ASTHENIA [None]
  - CHILLS [None]
  - FEELING HOT [None]
  - HEART RATE INCREASED [None]
  - HYPOTENSION [None]
  - NAUSEA [None]
  - PRURITUS [None]
